FAERS Safety Report 17358621 (Version 3)
Quarter: 2020Q2

REPORT INFORMATION
  Report Type: Spontaneous
  Country: US (occurrence: US)
  Receive Date: 20200201
  Receipt Date: 20200402
  Transmission Date: 20200713
  Serious: Yes (Hospitalization, Other)
  Sender: FDA-Public Use
  Company Number: US-UNITED THERAPEUTICS-UNT-2020-001176

PATIENT
  Age: 16 Year
  Sex: Male
  Weight: 49.48 kg

DRUGS (6)
  1. COUMADIN [Concomitant]
     Active Substance: WARFARIN SODIUM
     Indication: PRODUCT USED FOR UNKNOWN INDICATION
     Dosage: UNK
     Route: 065
  2. REMODULIN [Suspect]
     Active Substance: TREPROSTINIL
     Indication: PULMONARY ARTERIAL HYPERTENSION
     Dosage: 0.0224 ?G/KG, CONTINUING
     Route: 058
     Dates: start: 20191205
  3. REMODULIN [Suspect]
     Active Substance: TREPROSTINIL
     Indication: PULMONARY VASCULAR DISORDER
  4. ISRADIPINE. [Concomitant]
     Active Substance: ISRADIPINE
     Indication: PRODUCT USED FOR UNKNOWN INDICATION
     Dosage: UNK
     Route: 065
  5. REMODULIN [Suspect]
     Active Substance: TREPROSTINIL
     Indication: PULMONARY HYPERTENSION
  6. REMODULIN [Suspect]
     Active Substance: TREPROSTINIL
     Indication: CONGESTIVE CARDIOMYOPATHY

REACTIONS (3)
  - Congestive cardiomyopathy [Recovered/Resolved]
  - Product use in unapproved indication [Unknown]
  - Pulmonary vascular disorder [Recovered/Resolved]

NARRATIVE: CASE EVENT DATE: 20191205
